FAERS Safety Report 5397830-9 (Version None)
Quarter: 2007Q3

REPORT INFORMATION
  Report Type: 
  Country: None (occurrence: None)
  Receive Date: 20070724
  Receipt Date: 20070717
  Transmission Date: 20080115
  Serious: Yes (Other)
  Sender: FDA-Public Use
  Company Number: 2007326802

PATIENT
  Age: 39 Year
  Sex: Female

DRUGS (1)
  1. BENADRYL [Suspect]
     Indication: RASH
     Dosage: 2 TABLETS TWICE, ORAL
     Route: 048
     Dates: start: 20070716, end: 20070717

REACTIONS (1)
  - HALLUCINATION [None]
